FAERS Safety Report 4363068-7 (Version None)
Quarter: 2004Q2

REPORT INFORMATION
  Report Type: 
  Country: None (occurrence: None)
  Receive Date: 20040517
  Receipt Date: 20040310
  Transmission Date: 20050107
  Serious: No
  Sender: FDA-Public Use
  Company Number: S04-USA-01778-01

PATIENT
  Age: 85 Year
  Sex: Female

DRUGS (6)
  1. NAMENDA [Suspect]
     Dosage: 10 MG QD PO
     Route: 048
     Dates: start: 20040302
  2. NAMENDA [Suspect]
     Dosage: 5 MG QD PO
     Route: 048
     Dates: start: 20040224, end: 20040301
  3. ARICEPT [Concomitant]
  4. ZOLOFT [Concomitant]
  5. ZYPREXA [Concomitant]
  6. URECHOLINE (BETHANECHOL CHLORIDE) [Concomitant]

REACTIONS (4)
  - ASTHENIA [None]
  - DEHYDRATION [None]
  - DIZZINESS [None]
  - URINARY TRACT INFECTION [None]
